FAERS Safety Report 12376078 (Version 1)
Quarter: 2016Q2

REPORT INFORMATION
  Report Type: Spontaneous
  Country: US (occurrence: None)
  Receive Date: 20160516
  Receipt Date: 20160516
  Transmission Date: 20160815
  Serious: Yes (Hospitalization)
  Sender: FDA-Public Use
  Company Number: None

PATIENT
  Age: 95 Year
  Sex: Male
  Weight: 74.5 kg

DRUGS (1)
  1. MELOXICAM. [Suspect]
     Active Substance: MELOXICAM
     Indication: INTERVERTEBRAL DISC DEGENERATION
     Route: 048
     Dates: start: 20130306, end: 20151202

REACTIONS (2)
  - Gastric haemorrhage [None]
  - Fatigue [None]

NARRATIVE: CASE EVENT DATE: 20151201
